FAERS Safety Report 5209590-2 (Version None)
Quarter: 2007Q1

REPORT INFORMATION
  Report Type: 
  Country: None (occurrence: None)
  Receive Date: 20070111
  Receipt Date: 20070104
  Transmission Date: 20070707
  Serious: Yes (Hospitalization)
  Sender: FDA-Public Use
  Company Number: SPVI-2007-00049

PATIENT
  Age: 53 Year
  Sex: Female

DRUGS (3)
  1. ADDERALL 10 [Suspect]
  2. EFFEXOR [Suspect]
  3. SYNTHROID [Suspect]
     Dosage: 0.088MG, 2X/DAY; BID, ORAL
     Route: 048

REACTIONS (1)
  - DELUSIONAL DISORDER, UNSPECIFIED TYPE [None]
